FAERS Safety Report 20850240 (Version 2)
Quarter: 2022Q2

REPORT INFORMATION
  Report Type: Report from Study
  Country: US (occurrence: US)
  Receive Date: 20220519
  Receipt Date: 20220610
  Transmission Date: 20220720
  Serious: Yes (Other)
  Sender: FDA-Public Use
  Company Number: US-ABBVIE-22K-163-4373345-00

PATIENT
  Sex: Male

DRUGS (3)
  1. DUOPA [Suspect]
     Active Substance: CARBIDOPA\LEVODOPA
     Indication: Product used for unknown indication
     Dosage: INCREASED CONTINUOUS DOSE FROM 2.4 TO 3.7
     Route: 050
     Dates: start: 20220325
  2. DUOPA [Suspect]
     Active Substance: CARBIDOPA\LEVODOPA
  3. GABAPENTIN [Suspect]
     Active Substance: GABAPENTIN
     Indication: Product used for unknown indication
     Route: 065

REACTIONS (9)
  - Loss of consciousness [Unknown]
  - Neuropathy peripheral [Recovering/Resolving]
  - Freezing phenomenon [Recovering/Resolving]
  - Fall [Unknown]
  - Fall [Recovered/Resolved]
  - Tremor [Unknown]
  - Diarrhoea [Unknown]
  - Hallucination, visual [Unknown]
  - Dyskinesia [Unknown]

NARRATIVE: CASE EVENT DATE: 20220101
